FAERS Safety Report 6573652-8 (Version None)
Quarter: 2010Q1

REPORT INFORMATION
  Report Type: 
  Country: None (occurrence: None)
  Receive Date: 20100204
  Receipt Date: 20100204
  Transmission Date: 20100710
  Serious: Yes (Other)
  Sender: FDA-Public Use
  Company Number: None

PATIENT
  Sex: Male

DRUGS (1)
  1. PLAVIX [Suspect]
     Indication: BLOOD DISORDER
     Dosage: 75MG ONCE A DAY PO
     Route: 048
     Dates: start: 20091208, end: 20091214

REACTIONS (6)
  - ABDOMINAL PAIN UPPER [None]
  - DYSGEUSIA [None]
  - EPISTAXIS [None]
  - INSOMNIA [None]
  - MOUTH HAEMORRHAGE [None]
  - OESOPHAGEAL HAEMORRHAGE [None]
